FAERS Safety Report 9131649 (Version 1)
Quarter: 2013Q1

REPORT INFORMATION
  Report Type: Spontaneous
  Country: US (occurrence: US)
  Receive Date: 20130301
  Receipt Date: 20130301
  Transmission Date: 20140127
  Serious: Yes (Other)
  Sender: FDA-Public Use
  Company Number: US-PFIZER INC-2013072955

PATIENT
  Age: 38 Year
  Sex: Female
  Weight: 99.77 kg

DRUGS (4)
  1. NEURONTIN [Suspect]
     Indication: NEURALGIA
     Dosage: UNK
     Route: 048
     Dates: start: 201002, end: 201010
  2. NEURONTIN [Suspect]
     Indication: POST LAMINECTOMY SYNDROME
  3. NORCO [Concomitant]
     Indication: PAIN
     Dosage: 10/325 MG, AS NEEDED
  4. LEVOTHYROXINE [Concomitant]
     Indication: HYPOTHYROIDISM
     Dosage: 100 UG, UNK

REACTIONS (3)
  - Back disorder [Unknown]
  - Hypersensitivity [Unknown]
  - Drug ineffective [Unknown]
